FAERS Safety Report 26110294 (Version 1)
Quarter: 2025Q4

REPORT INFORMATION
  Report Type: Other
  Country: CA (occurrence: CA)
  Receive Date: 20251202
  Receipt Date: 20251202
  Transmission Date: 20260117
  Serious: Yes (Hospitalization, Other)
  Sender: EMERGENT BIOSOLUTIONS
  Company Number: CA-EMERGENT BIOSOLUTIONS-25000185

PATIENT
  Age: 31 Year
  Sex: Male

DRUGS (5)
  1. NALOXONE HYDROCHLORIDE [Suspect]
     Active Substance: NALOXONE HYDROCHLORIDE
     Indication: Overdose
     Dosage: UNK
     Route: 065
  2. NALOXONE HYDROCHLORIDE [Suspect]
     Active Substance: NALOXONE HYDROCHLORIDE
     Dosage: 0.1 MILLIGRAM
     Route: 042
  3. NALOXONE HYDROCHLORIDE [Suspect]
     Active Substance: NALOXONE HYDROCHLORIDE
     Dosage: 0.2 MILLIGRAM
     Route: 042
  4. METHADONE HYDROCHLORIDE [Concomitant]
     Active Substance: METHADONE HYDROCHLORIDE
     Indication: Product used for unknown indication
     Dosage: 40 MILLIGRAM
     Route: 065
  5. MORPHINE [Concomitant]
     Active Substance: MORPHINE
     Indication: Product used for unknown indication
     Dosage: 200 MILLIGRAM
     Route: 048

REACTIONS (2)
  - Pneumonia aspiration [Recovered/Resolved]
  - Drug ineffective [Unknown]
